FAERS Safety Report 9335176 (Version 1)
Quarter: 2013Q2

REPORT INFORMATION
  Report Type: Spontaneous
  Country: JP (occurrence: JP)
  Receive Date: 20130606
  Receipt Date: 20130606
  Transmission Date: 20140414
  Serious: Yes (Other)
  Sender: FDA-Public Use
  Company Number: JP-BAXTER-2013BAX021027

PATIENT
  Age: 8 Year
  Sex: Male

DRUGS (27)
  1. IFOSFAMIDE FOR INJECTION [Suspect]
     Indication: RHABDOID TUMOUR
  2. IFOSFAMIDE FOR INJECTION [Suspect]
     Indication: METASTASES TO LUNG
  3. IFOSFAMIDE FOR INJECTION [Suspect]
     Indication: ASCITES
  4. CELLTOP 100 MG/5 ML, SOLUTION INJECTABLE POUR PERFUSION [Suspect]
     Indication: RHABDOID TUMOUR
     Route: 065
  5. CELLTOP 100 MG/5 ML, SOLUTION INJECTABLE POUR PERFUSION [Suspect]
     Indication: METASTASES TO LUNG
  6. CELLTOP 100 MG/5 ML, SOLUTION INJECTABLE POUR PERFUSION [Suspect]
     Indication: ASCITES
  7. ACTINOMYCIN D [Suspect]
     Indication: RHABDOID TUMOUR
     Route: 065
  8. ACTINOMYCIN D [Suspect]
     Indication: METASTASES TO LUNG
  9. ACTINOMYCIN D [Suspect]
     Indication: ASCITES
  10. VINCRISTINE [Suspect]
     Indication: RHABDOID TUMOUR
     Route: 065
  11. VINCRISTINE [Suspect]
     Indication: METASTASES TO LUNG
  12. VINCRISTINE [Suspect]
     Indication: ASCITES
  13. CARBOPLATIN [Suspect]
     Indication: RHABDOID TUMOUR
     Route: 065
  14. CARBOPLATIN [Suspect]
     Indication: METASTASES TO LUNG
  15. CARBOPLATIN [Suspect]
     Indication: ASCITES
  16. THIOTEPA [Suspect]
     Indication: RHABDOID TUMOUR
     Route: 065
  17. THIOTEPA [Suspect]
     Indication: METASTASES TO LUNG
  18. THIOTEPA [Suspect]
     Indication: ASCITES
  19. MELPHALAN [Suspect]
     Indication: RHABDOID TUMOUR
     Route: 065
  20. MELPHALAN [Suspect]
     Indication: METASTASES TO LUNG
  21. MELPHALAN [Suspect]
     Indication: ASCITES
  22. DOXORUBICIN [Suspect]
     Indication: RHABDOID TUMOUR
     Route: 065
  23. DOXORUBICIN [Suspect]
     Indication: METASTASES TO LUNG
  24. DOXORUBICIN [Suspect]
     Indication: ASCITES
  25. PIRARUBICIN [Suspect]
     Indication: RHABDOID TUMOUR
     Route: 065
  26. PIRARUBICIN [Suspect]
     Indication: METASTASES TO LUNG
  27. PIRARUBICIN [Suspect]
     Indication: ASCITES

REACTIONS (4)
  - Renal tubular disorder [Unknown]
  - Electrolyte imbalance [Unknown]
  - Body height below normal [Unknown]
  - Recurrent cancer [Recovered/Resolved]
